FAERS Safety Report 11321685 (Version 1)
Quarter: 2015Q3

REPORT INFORMATION
  Report Type: Spontaneous
  Country: JP (occurrence: JP)
  Receive Date: 20150729
  Receipt Date: 20150729
  Transmission Date: 20151125
  Serious: Yes (Other)
  Sender: FDA-Public Use
  Company Number: JP-REGENERON PHARMACEUTICALS, INC.-2015-11690

PATIENT

DRUGS (3)
  1. EYLEA [Suspect]
     Active Substance: AFLIBERCEPT
     Indication: AGE-RELATED MACULAR DEGENERATION
     Dosage: 2 MG, Q1MON
     Route: 031
     Dates: start: 20150609, end: 20150609
  2. BSS PLUS [Interacting]
     Active Substance: CALCIUM CHLORIDE\DEXTROSE\MAGNESIUM CHLORIDE\OXIGLUTATIONE\POTASSIUM CHLORIDE\SODIUM BICARBONATE\SODIUM CHLORIDE\SODIUM PHOSPHATE\SODIUM PHOSPHATE, DIBASIC
     Indication: EYE IRRIGATION
  3. MACUGEN [Interacting]
     Active Substance: PEGAPTANIB SODIUM
     Indication: THERAPEUTIC PROCEDURE

REACTIONS (4)
  - Vitrectomy [Recovered/Resolved]
  - Drug interaction [Unknown]
  - Vitreous detachment [Recovered/Resolved]
  - Vitritis [Recovered/Resolved]

NARRATIVE: CASE EVENT DATE: 20150612
